FAERS Safety Report 8174181-0 (Version None)
Quarter: 2012Q1

REPORT INFORMATION
  Report Type: 
  Country: None (occurrence: None)
  Receive Date: 20120227
  Receipt Date: 20120209
  Transmission Date: 20120608
  Serious: No
  Sender: FDA-Public Use
  Company Number: 2012020161

PATIENT
  Age: 50 Year
  Sex: Male
  Weight: 88.4514 kg

DRUGS (5)
  1. AFRIN [Concomitant]
  2. ZOLPIDEM (SERTRALINE) [Concomitant]
  3. BENADRYL [Concomitant]
  4. EDLUAR [Suspect]
     Indication: INSOMNIA
     Dosage: 30 MG (30 MG, 1 IN 1 D), SUBLINGUAL
     Route: 060
     Dates: start: 20120126, end: 20120127
  5. AMOXICILLIN [Concomitant]

REACTIONS (6)
  - DRUG INEFFECTIVE [None]
  - GLOSSODYNIA [None]
  - OFF LABEL USE [None]
  - FATIGUE [None]
  - INCORRECT ROUTE OF DRUG ADMINISTRATION [None]
  - INAPPROPRIATE SCHEDULE OF DRUG ADMINISTRATION [None]
